FAERS Safety Report 11278529 (Version 1)
Quarter: 2015Q3

REPORT INFORMATION
  Report Type: Spontaneous
  Country: US (occurrence: None)
  Receive Date: 20150716
  Receipt Date: 20150716
  Transmission Date: 20151125
  Serious: Yes (Hospitalization)
  Sender: FDA-Public Use
  Company Number: None

PATIENT
  Age: 56 Year
  Sex: Male
  Weight: 74 kg

DRUGS (1)
  1. DONOR STOOL OPEN BIOME [Suspect]
     Active Substance: FECAL MICROBIOTA
     Indication: CLOSTRIDIUM DIFFICILE INFECTION
     Dosage: COLONOSCOPY??250ML STOOL
     Dates: start: 20150330

REACTIONS (7)
  - Emphysematous cystitis [None]
  - Urosepsis [None]
  - Clostridium difficile colitis [None]
  - Klebsiella test positive [None]
  - Post procedural infection [None]
  - Salmonellosis [None]
  - Disease recurrence [None]

NARRATIVE: CASE EVENT DATE: 20150413
